FAERS Safety Report 4633437-6 (Version None)
Quarter: 2005Q2

REPORT INFORMATION
  Report Type: 
  Country: None (occurrence: None)
  Receive Date: 20050412
  Receipt Date: 20050330
  Transmission Date: 20051028
  Serious: Yes (Other)
  Sender: FDA-Public Use
  Company Number: HQWYE650604APR05

PATIENT
  Age: 33 Year
  Sex: Male

DRUGS (3)
  1. EFFEXOR XR [Suspect]
     Dosage: 150 MG 1 X PER 1 DAY; ORAL
     Route: 048
     Dates: start: 20050118, end: 20050211
  2. CLOZARIL [Suspect]
     Dosage: 300 MG1X PER DAY
     Route: 048
     Dates: start: 20040915, end: 20050215
  3. LAMICTAL [Suspect]
     Dosage: 25 MG 1X PER DAY
     Route: 048
     Dates: start: 20050114, end: 20050211

REACTIONS (2)
  - NEUTROPENIA [None]
  - WHITE BLOOD CELL COUNT DECREASED [None]
